FAERS Safety Report 7030618-1 (Version None)
Quarter: 2010Q4

REPORT INFORMATION
  Report Type: 
  Country: None (occurrence: None)
  Receive Date: 20101006
  Receipt Date: 20100922
  Transmission Date: 20110411
  Serious: Yes (Other)
  Sender: FDA-Public Use
  Company Number: JP-ROCHE-730016

PATIENT
  Age: 63 Year
  Sex: Female

DRUGS (2)
  1. VESANOID [Suspect]
     Indication: ACUTE PROMYELOCYTIC LEUKAEMIA
     Dosage: NOTE: DOSAGE IS UNCERTAIN.
     Route: 048
  2. ANTINEOPLASTIC AGENT NOS [Concomitant]
     Dosage: DRUG:OTHER ANTINEOPLASTIC AGENTS,NOTE: DOSAGE IS UNCERTAIN,DOSE FORM: UNCERTAINTY
     Route: 065

REACTIONS (2)
  - HAEMOPHILIA [None]
  - THROMBOTIC THROMBOCYTOPENIC PURPURA [None]
